FAERS Safety Report 16212733 (Version 1)
Quarter: 2019Q2

REPORT INFORMATION
  Report Type: Spontaneous
  Country: US (occurrence: US)
  Receive Date: 20190418
  Receipt Date: 20190418
  Transmission Date: 20190711
  Serious: No
  Sender: FDA-Public Use
  Company Number: US-ASTELLAS-2018US031690

PATIENT
  Age: 83 Year
  Sex: Female

DRUGS (3)
  1. LEXISCAN [Suspect]
     Active Substance: REGADENOSON
     Dosage: 0.4 MG, UNKNOWN FREQ.
     Route: 065
     Dates: start: 20160825, end: 20160825
  2. LEXISCAN [Suspect]
     Active Substance: REGADENOSON
     Dosage: 0.4 MG, UNK
     Route: 065
     Dates: start: 20180111, end: 20180111
  3. LEXISCAN [Suspect]
     Active Substance: REGADENOSON
     Indication: CARDIAC STRESS TEST
     Dosage: 0.4 MG, UNKNOWN FREQ.
     Route: 065
     Dates: start: 20140821, end: 20140821

REACTIONS (4)
  - Incorrect product administration duration [Unknown]
  - Incorrect product administration duration [Unknown]
  - Incorrect product administration duration [Unknown]
  - Chest discomfort [Recovered/Resolved]

NARRATIVE: CASE EVENT DATE: 20160825
